FAERS Safety Report 18866496 (Version 4)
Quarter: 2021Q2

REPORT INFORMATION
  Report Type: Report from Study
  Country: US (occurrence: US)
  Receive Date: 20210208
  Receipt Date: 20210601
  Transmission Date: 20210717
  Serious: Yes (Hospitalization)
  Sender: FDA-Public Use
  Company Number: US-JNJFOC-20210209614

PATIENT
  Age: 19 Year
  Sex: Male
  Weight: 83.9 kg

DRUGS (47)
  1. RAMELTEON [Concomitant]
     Active Substance: RAMELTEON
  2. ENOXAPARIN [Concomitant]
     Active Substance: ENOXAPARIN
  3. MESALAMINE. [Concomitant]
     Active Substance: MESALAMINE
  4. OXYCODONE [Concomitant]
     Active Substance: OXYCODONE
  5. DIPHENHYDRAMINE. [Concomitant]
     Active Substance: DIPHENHYDRAMINE
  6. SUCCINYLCHOLINE [SUXAMETHONIUM] [Concomitant]
     Active Substance: SUCCINYLCHOLINE
  7. DEXTROSE. [Concomitant]
     Active Substance: DEXTROSE
  8. AUGMENTIN [Concomitant]
     Active Substance: AMOXICILLIN\CLAVULANATE POTASSIUM
  9. XELJANZ [Suspect]
     Active Substance: TOFACITINIB CITRATE
     Indication: PRODUCT USED FOR UNKNOWN INDICATION
     Route: 065
  10. IBUPROFEN. [Concomitant]
     Active Substance: IBUPROFEN
  11. ACETAMINOPHEN. [Concomitant]
     Active Substance: ACETAMINOPHEN
  12. ALTEPLASE. [Concomitant]
     Active Substance: ALTEPLASE
  13. SALINE [SODIUM CHLORIDE] [Concomitant]
     Active Substance: SODIUM CHLORIDE
  14. MELATONIN [Concomitant]
     Active Substance: MELATONIN
  15. CLINISOL [BENZALKONIUM CHLORIDE] [Concomitant]
  16. EPHEDRINE. [Concomitant]
     Active Substance: EPHEDRINE
  17. LEVOFLOXACIN. [Concomitant]
     Active Substance: LEVOFLOXACIN
  18. NALOXONE [Concomitant]
     Active Substance: NALOXONE
  19. PIPERACILLIN AND TAZOBACTAM [Concomitant]
     Active Substance: PIPERACILLIN SODIUM\TAZOBACTAM SODIUM
  20. HYDROCORTISONE SODIUM SUCCINATE [Concomitant]
     Active Substance: HYDROCORTISONE SODIUM SUCCINATE
  21. SUGAMMADEX [Concomitant]
     Active Substance: SUGAMMADEX
  22. LACTATED RINGERS SOLUTION [Concomitant]
     Active Substance: CALCIUM CHLORIDE\POTASSIUM CHLORIDE\SODIUM CHLORIDE\SODIUM LACTATE
  23. HYDROMORPHONE [Concomitant]
     Active Substance: HYDROMORPHONE
  24. IOHEXOL [Concomitant]
     Active Substance: IOHEXOL
  25. MAGNESIUM SULFATE. [Concomitant]
     Active Substance: MAGNESIUM SULFATE
  26. LORAZEPAM. [Concomitant]
     Active Substance: LORAZEPAM
  27. HALOPERIDOL. [Concomitant]
     Active Substance: HALOPERIDOL
  28. METRONIDAZOLE. [Concomitant]
     Active Substance: METRONIDAZOLE
  29. VECURONIUM [Concomitant]
     Active Substance: VECURONIUM BROMIDE
  30. INFLIXIMAB, RECOMBINANT [Suspect]
     Active Substance: INFLIXIMAB
     Indication: INFLAMMATORY BOWEL DISEASE
     Route: 042
     Dates: start: 20170928
  31. DEXMEDETOMIDINE. [Concomitant]
     Active Substance: DEXMEDETOMIDINE
  32. APIXABAN [Concomitant]
     Active Substance: APIXABAN
  33. ONDANSETRON [Concomitant]
     Active Substance: ONDANSETRON
  34. FENTANYL. [Concomitant]
     Active Substance: FENTANYL
  35. KETAMINE [Concomitant]
     Active Substance: KETAMINE
  36. DIATRIZOATE MEGLUMINE [Concomitant]
     Active Substance: DIATRIZOATE MEGLUMINE
  37. HYDROXYZINE [Concomitant]
     Active Substance: HYDROXYZINE HYDROCHLORIDE
  38. DEXAMETHASONE. [Concomitant]
     Active Substance: DEXAMETHASONE
  39. MORPHINE [Concomitant]
     Active Substance: MORPHINE
  40. MIDAZOLAM. [Concomitant]
     Active Substance: MIDAZOLAM
  41. GABAPENTIN. [Concomitant]
     Active Substance: GABAPENTIN
  42. LIDOCAINE. [Concomitant]
     Active Substance: LIDOCAINE
  43. SIMETHICONE (DIMETHICONE) [Concomitant]
     Active Substance: DIMETHICONE
  44. HEPARIN [Concomitant]
     Active Substance: HEPARIN SODIUM
  45. CEFAZOLIN [Concomitant]
     Active Substance: CEFAZOLIN
  46. PROPOFOL. [Concomitant]
     Active Substance: PROPOFOL
  47. CHLORHEXIDINE [Concomitant]
     Active Substance: CHLORHEXIDINE

REACTIONS (4)
  - Small intestinal obstruction [Recovered/Resolved]
  - Abdominal abscess [Recovered/Resolved]
  - Pelvic venous thrombosis [Recovered/Resolved with Sequelae]
  - Colitis ulcerative [Recovered/Resolved with Sequelae]

NARRATIVE: CASE EVENT DATE: 20201214
